FAERS Safety Report 7519285-8 (Version None)
Quarter: 2011Q2

REPORT INFORMATION
  Report Type: 
  Country: None (occurrence: None)
  Receive Date: 20110602
  Receipt Date: 20110519
  Transmission Date: 20111010
  Serious: Yes (Hospitalization)
  Sender: FDA-Public Use
  Company Number: PHHY2011DE44819

PATIENT
  Sex: Male
  Weight: 75 kg

DRUGS (5)
  1. EXJADE [Suspect]
     Indication: MYELODYSPLASTIC SYNDROME
     Dosage: UNK
     Route: 048
     Dates: start: 20100901, end: 20101001
  2. CHEMOTHERAPEUTICS NOS [Concomitant]
  3. EXJADE [Suspect]
     Dosage: 125 MG, UNK
     Route: 048
  4. EXJADE [Suspect]
     Dosage: 1125-1500 MG
     Route: 048
     Dates: start: 20110305
  5. PLAVIX [Concomitant]

REACTIONS (6)
  - DIVERTICULITIS [None]
  - PYREXIA [None]
  - DIARRHOEA [None]
  - NAUSEA [None]
  - DRUG INEFFECTIVE [None]
  - GASTROINTESTINAL INFLAMMATION [None]
